FAERS Safety Report 8427768-1 (Version None)
Quarter: 2012Q2

REPORT INFORMATION
  Report Type: 
  Country: None (occurrence: None)
  Receive Date: 20120611
  Receipt Date: 20120530
  Transmission Date: 20120825
  Serious: Yes (Hospitalization)
  Sender: FDA-Public Use
  Company Number: IT-FRI-1000031140

PATIENT
  Sex: Female

DRUGS (3)
  1. ALPRAZOLAM [Suspect]
     Dosage: OVERDOSE TOOK 19 TABLETS AT ONCE
     Dates: start: 20120522, end: 20120522
  2. ESCITALOPRAM [Suspect]
     Indication: PRODUCT USED FOR UNKNOWN INDICATION
     Dosage: OVERDOSE TOOK 14 TABLETS AT ONCE
     Dates: start: 20120522, end: 20120522
  3. CITALOPRAM HYDROBROMIDE [Suspect]
     Dosage: OVERDOSE TOOK 28 TABLETS AT ONCE
     Dates: start: 20120522, end: 20120522

REACTIONS (2)
  - SOPOR [None]
  - INTENTIONAL OVERDOSE [None]
